FAERS Safety Report 7750560-8 (Version None)
Quarter: 2011Q3

REPORT INFORMATION
  Report Type: 
  Country: None (occurrence: None)
  Receive Date: 20110914
  Receipt Date: 20110909
  Transmission Date: 20111222
  Serious: Yes (Other)
  Sender: FDA-Public Use
  Company Number: GB-MERCK-1109GBR00049

PATIENT
  Age: 56 Year
  Sex: Male
  Weight: 98 kg

DRUGS (3)
  1. JANUVIA [Suspect]
     Indication: DIABETES MELLITUS
     Route: 048
     Dates: start: 20110525
  2. METFORMIN [Concomitant]
     Indication: DIABETES MELLITUS
     Route: 048
     Dates: start: 20110207
  3. LANSOPRAZOLE [Concomitant]
     Route: 048
     Dates: start: 20100809

REACTIONS (1)
  - ERECTILE DYSFUNCTION [None]
